FAERS Safety Report 4382155-0 (Version None)
Quarter: 2004Q2

REPORT INFORMATION
  Report Type: 
  Country: None (occurrence: None)
  Receive Date: 20040615
  Receipt Date: 20031124
  Transmission Date: 20050107
  Serious: Yes (Hospitalization)
  Sender: FDA-Public Use
  Company Number: DE-SHR-03-018050

PATIENT
  Sex: Male

DRUGS (1)
  1. QUADRAMET [Suspect]
     Dosage: 2861 MBQ
     Route: 042
     Dates: start: 20031023, end: 20031023

REACTIONS (1)
  - FULL BLOOD COUNT DECREASED [None]
